FAERS Safety Report 10692641 (Version 2)
Quarter: 2015Q1

REPORT INFORMATION
  Report Type: Spontaneous
  Country: GB (occurrence: GB)
  Receive Date: 20150106
  Receipt Date: 20150120
  Transmission Date: 20150720
  Serious: Yes (Other)
  Sender: FDA-Public Use
  Company Number: GB-JNJFOC-20141220579

PATIENT
  Age: 69 Year
  Sex: Male

DRUGS (1)
  1. INFLIXIMAB, RECOMBINANT [Suspect]
     Active Substance: INFLIXIMAB
     Indication: RHEUMATOID ARTHRITIS
     Dosage: 350
     Route: 042
     Dates: end: 20141217

REACTIONS (5)
  - Hypersensitivity [Recovered/Resolved]
  - Chills [Unknown]
  - Infusion related reaction [Unknown]
  - Tachycardia [Unknown]
  - Skin reaction [Unknown]
